FAERS Safety Report 20572497 (Version 1)
Quarter: 2022Q1

REPORT INFORMATION
  Report Type: Spontaneous
  Country: US (occurrence: None)
  Receive Date: 20220308
  Receipt Date: 20220308
  Transmission Date: 20220423
  Serious: Yes (Hospitalization)
  Sender: FDA-Public Use
  Company Number: None

PATIENT
  Age: 29 Year
  Sex: Male

DRUGS (9)
  1. AMBRISENTAN [Suspect]
     Active Substance: AMBRISENTAN
     Indication: Pulmonary arterial hypertension
     Dosage: FREQUENCY : DAILY;?
     Route: 048
     Dates: start: 20130103
  2. UPTRAVI [Concomitant]
     Active Substance: SELEXIPAG
  3. FOLIC ACID [Concomitant]
     Active Substance: FOLIC ACID
  4. TORSEMIDE [Concomitant]
     Active Substance: TORSEMIDE
  5. METOPROLOL [Concomitant]
     Active Substance: METOPROLOL
  6. ONDANSETRON [Concomitant]
     Active Substance: ONDANSETRON
  7. ALLOPURINOL [Concomitant]
     Active Substance: ALLOPURINOL
  8. AMOXICILLIN [Concomitant]
     Active Substance: AMOXICILLIN
  9. VITAMIN D3 [Concomitant]
     Active Substance: CHOLECALCIFEROL

REACTIONS (2)
  - Hypervolaemia [None]
  - Dyspnoea [None]

NARRATIVE: CASE EVENT DATE: 20220216
